FAERS Safety Report 20279914 (Version 1)
Quarter: 2022Q1

REPORT INFORMATION
  Report Type: Spontaneous
  Country: JP (occurrence: JP)
  Receive Date: 20220103
  Receipt Date: 20220103
  Transmission Date: 20220424
  Serious: Yes (Death, Other)
  Sender: FDA-Public Use
  Company Number: JP-CHUGAI-2021033895

PATIENT
  Age: 70 Year
  Sex: Male

DRUGS (4)
  1. TECENTRIQ [Suspect]
     Active Substance: ATEZOLIZUMAB
     Indication: Non-small cell lung cancer
     Dosage: UNK
     Route: 041
     Dates: end: 20211216
  2. AVASTIN [Suspect]
     Active Substance: BEVACIZUMAB
     Indication: Non-small cell lung cancer
     Dosage: UNK
     Route: 041
     Dates: end: 20211216
  3. CARBOPLATIN [Suspect]
     Active Substance: CARBOPLATIN
     Indication: Non-small cell lung cancer
     Route: 041
     Dates: end: 20211216
  4. PACLITAXEL [Suspect]
     Active Substance: PACLITAXEL
     Indication: Non-small cell lung cancer
     Route: 041
     Dates: end: 20211216

REACTIONS (4)
  - Death [Fatal]
  - Febrile neutropenia [Unknown]
  - Cerebral infarction [Unknown]
  - Colitis [Unknown]

NARRATIVE: CASE EVENT DATE: 20211216
